FAERS Safety Report 8136696-0 (Version None)
Quarter: 2012Q1

REPORT INFORMATION
  Report Type: 
  Country: None (occurrence: None)
  Receive Date: 20120214
  Receipt Date: 20120130
  Transmission Date: 20120608
  Serious: Yes (Hospitalization)
  Sender: FDA-Public Use
  Company Number: KR-WATSON-2012-02180

PATIENT
  Age: 36 Year
  Sex: Male

DRUGS (16)
  1. METRONIDAZOLE [Suspect]
     Indication: URINARY TRACT INFECTION
  2. TIZANIDINE HCL [Suspect]
  3. CEFTRIAXONE [Suspect]
     Indication: SKIN ULCER
     Route: 065
  4. CIPROFLOXACIN HCL [Suspect]
     Indication: SKIN ULCER
     Route: 065
  5. CLONAZEPAM [Suspect]
     Indication: URINARY TRACT INFECTION
  6. IMIPENEM [Suspect]
  7. CLONAZEPAM [Suspect]
     Indication: SKIN ULCER
     Route: 065
  8. METRONIDAZOLE [Suspect]
     Indication: SKIN ULCER
     Route: 065
  9. CEFTRIAXONE [Suspect]
     Indication: URINARY TRACT INFECTION
  10. CIPROFLOXACIN HCL [Suspect]
     Indication: URINARY TRACT INFECTION
  11. CLINDAMYCIN HCL [Suspect]
     Indication: SKIN ULCER
     Route: 065
  12. VANCOMYCIN HYCHLORIDE [Suspect]
     Indication: SKIN ULCER
     Route: 065
  13. CLINDAMYCIN HCL [Suspect]
     Indication: URINARY TRACT INFECTION
  14. MEROPENEM [Suspect]
     Indication: SKIN ULCER
     Route: 065
  15. MEROPENEM [Suspect]
     Indication: URINARY TRACT INFECTION
  16. VANCOMYCIN HYCHLORIDE [Suspect]
     Indication: URINARY TRACT INFECTION

REACTIONS (1)
  - HEPATOCELLULAR INJURY [None]
